FAERS Safety Report 9366440 (Version 2)
Quarter: 2013Q3

REPORT INFORMATION
  Report Type: Spontaneous
  Country: US (occurrence: US)
  Receive Date: 20130625
  Receipt Date: 20130828
  Transmission Date: 20140515
  Serious: Yes (Other)
  Sender: FDA-Public Use
  Company Number: US-BIOMARINAP-US-2013-100983

PATIENT
  Age: 10 Year
  Sex: Female
  Weight: 32.3 kg

DRUGS (1)
  1. ALDURAZYME [Suspect]
     Indication: MUCOPOLYSACCHARIDOSIS I
     Dosage: 17.4 MG, QW
     Route: 041
     Dates: start: 20070625

REACTIONS (1)
  - Cerebrospinal fluid leakage [Unknown]
